FAERS Safety Report 5457980-5 (Version None)
Quarter: 2007Q3

REPORT INFORMATION
  Report Type: 
  Country: None (occurrence: None)
  Receive Date: 20070917
  Receipt Date: 20070910
  Transmission Date: 20080115
  Serious: Yes (Other)
  Sender: FDA-Public Use
  Company Number: CHPA2007US09484

PATIENT
  Age: 4 Year
  Sex: Male
  Weight: 18.1 kg

DRUGS (1)
  1. TRIAMINIC THIN STRIPS-COUGH AND RUNNY NOSE (NCH)(DIPHENHYDRAMINE HYDRO [Suspect]
     Indication: COUGH
     Dosage: 6.25 MG, ONCE/SINGLE, ORAL
     Route: 048
     Dates: start: 20070909, end: 20070909

REACTIONS (5)
  - DYSPNOEA [None]
  - GLOSSITIS [None]
  - HYPERSENSITIVITY [None]
  - INCORRECT DOSE ADMINISTERED [None]
  - SWOLLEN TONGUE [None]
